FAERS Safety Report 8816105 (Version 1)
Quarter: 2012Q4

REPORT INFORMATION
  Report Type: 
  Country: ES (occurrence: ES)
  Receive Date: 20120928
  Receipt Date: 20120928
  Transmission Date: 20130627
  Serious: Yes (Death, Other)
  Sender: FDA-Public Use
  Company Number: ES-JNJFOC-20120912020

PATIENT
  Age: 3 Month

DRUGS (10)
  1. TOPIRAMATE [Suspect]
     Indication: CONVULSION
     Route: 048
  2. PHENOBARBITAL [Suspect]
     Indication: CONVULSION
     Route: 065
  3. CLONAZEPAM [Suspect]
     Indication: CONVULSION
     Route: 065
  4. LIDOCAINE [Suspect]
     Indication: CONVULSION
     Route: 065
  5. LEVETIRACETAM [Suspect]
     Indication: CONVULSION
     Route: 065
  6. PHENYTOIN [Suspect]
     Indication: CONVULSION
     Route: 065
  7. VALPROIC ACID [Suspect]
     Indication: CONVULSION
     Route: 065
  8. ZONISAMIDE [Suspect]
     Indication: CONVULSION
     Route: 065
  9. VIGABATRIN [Suspect]
     Indication: CONVULSION
     Route: 065
  10. PYRIDOXINE [Concomitant]
     Indication: CONVULSION
     Route: 065

REACTIONS (3)
  - Cardiac failure [Fatal]
  - Hypertrophic cardiomyopathy [Unknown]
  - No therapeutic response [Recovered/Resolved]
